FAERS Safety Report 10056491 (Version 2)
Quarter: 2014Q2

REPORT INFORMATION
  Report Type: Spontaneous
  Country: US (occurrence: US)
  Receive Date: 20140403
  Receipt Date: 20140413
  Transmission Date: 20141212
  Serious: No
  Sender: FDA-Public Use
  Company Number: US-009507513-1404USA001120

PATIENT
  Sex: 0

DRUGS (1)
  1. EMEND [Suspect]
     Dosage: UNK, EMEND VIAL
     Route: 042

REACTIONS (1)
  - Infusion site pain [Recovered/Resolved]
